FAERS Safety Report 10989897 (Version 4)
Quarter: 2015Q2

REPORT INFORMATION
  Report Type: Spontaneous
  Country: US (occurrence: US)
  Receive Date: 20150406
  Receipt Date: 20150512
  Transmission Date: 20150821
  Serious: No
  Sender: FDA-Public Use
  Company Number: US-TEVA-539985USA

PATIENT
  Sex: Male

DRUGS (1)
  1. TREANDA [Suspect]
     Active Substance: BENDAMUSTINE HYDROCHLORIDE
     Dosage: 180 MG / 2 ML
     Route: 042

REACTIONS (10)
  - Cough [Not Recovered/Not Resolved]
  - Confusional state [Not Recovered/Not Resolved]
  - Occupational exposure to product [Unknown]
  - Fatigue [Not Recovered/Not Resolved]
  - Nausea [Unknown]
  - Exposure via contaminated device [Unknown]
  - Dizziness [Unknown]
  - Respiratory tract irritation [Not Recovered/Not Resolved]
  - Respiratory tract inflammation [Unknown]
  - Pneumonitis [Recovered/Resolved]

NARRATIVE: CASE EVENT DATE: 201502
